FAERS Safety Report 6436923-1 (Version None)
Quarter: 2009Q4

REPORT INFORMATION
  Report Type: 
  Country: None (occurrence: None)
  Receive Date: 20091111
  Receipt Date: 20091102
  Transmission Date: 20100525
  Serious: Yes (Other)
  Sender: FDA-Public Use
  Company Number: PHHO2009FR13535

PATIENT
  Sex: Male
  Weight: 79 kg

DRUGS (4)
  1. RAD 666 RAD+TAB [Suspect]
     Indication: RENAL CANCER METASTATIC
     Dosage: 10 MG /DAY
     Route: 048
     Dates: start: 20090817, end: 20090828
  2. LIPANTHYL [Concomitant]
  3. LYTOS [Concomitant]
  4. DUPHALAC [Concomitant]

REACTIONS (4)
  - COUGH [None]
  - DYSPNOEA EXERTIONAL [None]
  - LUNG DISORDER [None]
  - PULMONARY HILUM MASS [None]
